FAERS Safety Report 6802943-8 (Version None)
Quarter: 2010Q2

REPORT INFORMATION
  Report Type: 
  Country: None (occurrence: None)
  Receive Date: 20100628
  Receipt Date: 20100622
  Transmission Date: 20101027
  Serious: Yes (Hospitalization)
  Sender: FDA-Public Use
  Company Number: US-SANOFI-AVENTIS-2010SA021146

PATIENT
  Age: 66 Year
  Sex: Male
  Weight: 99.5 kg

DRUGS (14)
  1. CLOPIDOGREL BISULFATE [Suspect]
     Route: 048
  2. DOCETAXEL [Suspect]
     Indication: PROSTATE CANCER
     Route: 042
     Dates: start: 20100204, end: 20100204
  3. BLINDED THERAPY [Suspect]
     Indication: PROSTATE CANCER
     Route: 048
     Dates: start: 20100204, end: 20100215
  4. DEXAMETHASONE [Suspect]
     Indication: PROSTATE CANCER
     Route: 065
     Dates: start: 20100204
  5. ACETYLSALICYLIC ACID [Suspect]
     Route: 065
  6. CARVEDILOL [Suspect]
     Route: 065
  7. LISINOPRIL [Suspect]
     Route: 065
  8. ALL OTHER THERAPEUTIC PRODUCTS [Suspect]
     Route: 065
  9. NAPROXEN [Suspect]
     Route: 065
  10. OMEPRAZOLE [Suspect]
     Route: 065
  11. PREDNISONE [Concomitant]
     Indication: PROSTATE CANCER
     Dates: start: 20100204
  12. ACETAMINOPHEN W/ PROPOXYPHENE HCL [Concomitant]
  13. MORNIFLUMATE [Concomitant]
  14. LEUPROLIDE ACETATE [Concomitant]

REACTIONS (3)
  - HYPOGLYCAEMIA [None]
  - HYPOTENSION [None]
  - LARGE INTESTINAL HAEMORRHAGE [None]
